FAERS Safety Report 20993679 (Version 1)
Quarter: 2022Q2

REPORT INFORMATION
  Report Type: Spontaneous
  Country: US (occurrence: None)
  Receive Date: 20220622
  Receipt Date: 20220622
  Transmission Date: 20220721
  Serious: Yes (Death)
  Sender: FDA-Public Use
  Company Number: None

PATIENT
  Age: 94 Year
  Sex: Female

DRUGS (2)
  1. TADALAFIL [Suspect]
     Active Substance: TADALAFIL
     Dosage: FREQUENCY : DAILY;?
     Route: 048
     Dates: start: 201708
  2. BOSENTAN [Concomitant]
     Active Substance: BOSENTAN

REACTIONS (1)
  - Death [None]

NARRATIVE: CASE EVENT DATE: 20220424
